FAERS Safety Report 16196711 (Version 1)
Quarter: 2019Q2

REPORT INFORMATION
  Report Type: Spontaneous
  Country: US (occurrence: US)
  Receive Date: 20190412
  Receipt Date: 20190412
  Transmission Date: 20190711
  Serious: Yes (Other)
  Sender: FDA-Public Use
  Company Number: None

PATIENT
  Age: 10 Year
  Sex: Female
  Weight: 22 kg

DRUGS (3)
  1. LEUPROLIDE ACETATE. [Suspect]
     Active Substance: LEUPROLIDE ACETATE
     Indication: PRECOCIOUS PUBERTY
     Dosage: ?          OTHER FREQUENCY:ONE TIME DOSE;?
     Route: 030
     Dates: start: 20180919
  2. METHIMAZOLE. [Concomitant]
     Active Substance: METHIMAZOLE
     Dates: start: 20120401
  3. LETROZOLE. [Concomitant]
     Active Substance: LETROZOLE
     Dates: start: 20120401

REACTIONS (2)
  - Hallucination, visual [None]
  - Anxiety [None]

NARRATIVE: CASE EVENT DATE: 20180920
